FAERS Safety Report 11486466 (Version 3)
Quarter: 2016Q2

REPORT INFORMATION
  Report Type: Spontaneous
  Country: US (occurrence: US)
  Receive Date: 20150910
  Receipt Date: 20160531
  Transmission Date: 20160815
  Serious: No
  Sender: FDA-Public Use
  Company Number: US-ASTRAZENECA-2013SE78629

PATIENT
  Sex: Male
  Weight: 81.6 kg

DRUGS (9)
  1. BYDUREON [Suspect]
     Active Substance: EXENATIDE
     Indication: TYPE 1 DIABETES MELLITUS
     Route: 058
  2. BYETTA [Suspect]
     Active Substance: EXENATIDE
     Indication: TYPE 2 DIABETES MELLITUS
     Route: 058
  3. METFORMIN HCL [Suspect]
     Active Substance: METFORMIN HYDROCHLORIDE
     Indication: TYPE 2 DIABETES MELLITUS
     Dosage: 1000 MG,TWO TIMES A DAY NON AZ PRODUCT
     Route: 048
  4. LANTUS [Suspect]
     Active Substance: INSULIN GLARGINE
     Indication: TYPE 2 DIABETES MELLITUS
     Route: 065
  5. TYLENOL [Concomitant]
     Active Substance: ACETAMINOPHEN
     Indication: HEADACHE
  6. LANTUS [Suspect]
     Active Substance: INSULIN GLARGINE
     Indication: TYPE 2 DIABETES MELLITUS
     Route: 065
  7. BYDUREON [Suspect]
     Active Substance: EXENATIDE
     Indication: TYPE 1 DIABETES MELLITUS
     Route: 058
     Dates: start: 20131011, end: 201312
  8. HUMALOG [Suspect]
     Active Substance: INSULIN LISPRO
     Route: 065
  9. BYETTA [Suspect]
     Active Substance: EXENATIDE
     Indication: TYPE 2 DIABETES MELLITUS
     Dosage: 0.25 MG/ML, TWO TIMES A DAY
     Route: 058
     Dates: start: 2005

REACTIONS (18)
  - Pain [Not Recovered/Not Resolved]
  - Needle issue [Unknown]
  - Underdose [Unknown]
  - Vomiting [Unknown]
  - Injection site swelling [Unknown]
  - Pain in extremity [Unknown]
  - Hypophagia [Not Recovered/Not Resolved]
  - Product quality issue [Unknown]
  - Arthralgia [Unknown]
  - Injection site haemorrhage [Unknown]
  - Sleep disorder [Not Recovered/Not Resolved]
  - Nausea [Unknown]
  - Blood glucose increased [Unknown]
  - Asthenia [Unknown]
  - Decreased appetite [Not Recovered/Not Resolved]
  - Circumstance or information capable of leading to medication error [Unknown]
  - Injection site mass [Not Recovered/Not Resolved]
  - Expired product administered [Recovered/Resolved]
